FAERS Safety Report 21454091 (Version 1)
Quarter: 2022Q4

REPORT INFORMATION
  Report Type: Spontaneous
  Country: US (occurrence: US)
  Receive Date: 20221013
  Receipt Date: 20221013
  Transmission Date: 20230113
  Serious: Yes (Death)
  Sender: FDA-Public Use
  Company Number: US-HORIZON THERAPEUTICS-HZN-2022-007925

PATIENT

DRUGS (2)
  1. UPLIZNA [Suspect]
     Active Substance: INEBILIZUMAB-CDON
     Indication: Neuromyelitis optica spectrum disorder
     Dosage: FIRST INFUSION
     Route: 042
  2. UPLIZNA [Suspect]
     Active Substance: INEBILIZUMAB-CDON
     Dosage: LAST INFUSION
     Route: 042
     Dates: start: 202205

REACTIONS (2)
  - COVID-19 [Fatal]
  - Disease complication [Fatal]

NARRATIVE: CASE EVENT DATE: 20220101
